FAERS Safety Report 16890493 (Version 3)
Quarter: 2020Q1

REPORT INFORMATION
  Report Type: Spontaneous
  Country: FR (occurrence: FR)
  Receive Date: 20191007
  Receipt Date: 20200109
  Transmission Date: 20200409
  Serious: Yes (Other)
  Sender: FDA-Public Use
  Company Number: FR-AUROBINDO-AUR-APL-2019-064925

PATIENT
  Age: 24 Year
  Sex: Male
  Weight: 48 kg

DRUGS (17)
  1. TOBRAMYCIN. [Suspect]
     Active Substance: TOBRAMYCIN
     Dosage: 2 DOSAGE FORM, ONCE A DAY (1 AMPOULE, BID)
     Route: 065
     Dates: start: 20190716
  2. SKENAN [Concomitant]
     Active Substance: MORPHINE SULFATE
     Indication: PAIN PROPHYLAXIS
     Dosage: 1 ONCE A DAY(2 (UNITS NOT REPORTED) A DAY (QD))
     Route: 048
  3. CELLCEPT [Concomitant]
     Active Substance: MYCOPHENOLATE MOFETIL\MYCOPHENOLATE MOFETIL HYDROCHLORIDE
     Indication: PROPHYLAXIS AGAINST TRANSPLANT REJECTION
     Dosage: 1400 MILLIGRAM, ONCE A DAY (700 MILLIGRAM, TWO TIMES A DAY (BID))
     Route: 048
  4. CALCIPARINE [Concomitant]
     Active Substance: HEPARIN CALCIUM
     Indication: THROMBOSIS PROPHYLAXIS
     Dosage: 1 MILLILITER, ONCE A DAY (0.5 MILLILITER, TWO TIMES A DAY (BID))
     Route: 065
     Dates: start: 20190718
  5. LASILIX [Concomitant]
     Active Substance: FUROSEMIDE
     Indication: SUPPORTIVE CARE
     Dosage: 20 MILLIGRAM, ONCE A DAY
     Route: 048
     Dates: end: 20190801
  6. PROGRAF [Concomitant]
     Active Substance: TACROLIMUS
     Indication: PROPHYLAXIS AGAINST TRANSPLANT REJECTION
     Dosage: 2 MILLIGRAM, ONCE A DAY (1 MILLIGRAM, TWO TIMES A DAY (BID))
     Route: 060
  7. TOBRAMYCIN. [Suspect]
     Active Substance: TOBRAMYCIN
     Indication: BACTERAEMIA
     Dosage: 200 MILLIGRAM, ONCE A DAY
     Route: 042
     Dates: start: 20190715, end: 20190722
  8. CORTANCYL [Concomitant]
     Active Substance: PREDNISONE
     Indication: ANTIINFLAMMATORY THERAPY
     Dosage: 20 MILLIGRAM, ONCE A DAY
     Route: 048
  9. COLISTIN [Concomitant]
     Active Substance: COLISTIN
     Indication: PRODUCT USED FOR UNKNOWN INDICATION
     Dosage: 6 DOSAGE FORM, ONCE A DAY (2 MUI, TID)
     Route: 065
     Dates: start: 20190717
  10. VORICONAZOLE. [Suspect]
     Active Substance: VORICONAZOLE
     Indication: PROPHYLAXIS
     Dosage: 1 ONCE A DAY, (200 (UNITS NOT REPORTED), ONCE A DAY (QD))
     Route: 048
     Dates: start: 20190718, end: 20190731
  11. CEFTOLOZANE SULFATE;TAZOBACTAM SODIUM [Suspect]
     Active Substance: CEFTOLOZANE SULFATE\TAZOBACTAM SODIUM
     Indication: BACTERAEMIA
     Dosage: 3 ONCE A DAY, (1 G/ 0.5 G, 3 TIME/ 24 HOURS)
     Route: 042
     Dates: start: 20190729, end: 20190731
  12. VALGANCICLOVIR. [Suspect]
     Active Substance: VALGANCICLOVIR
     Indication: PROPHYLAXIS
     Dosage: 900 MILLIGRAM, ONCE A DAY
     Route: 048
     Dates: start: 20190719
  13. TOBRAMYCIN. [Concomitant]
     Active Substance: TOBRAMYCIN
     Indication: PRODUCT USED FOR UNKNOWN INDICATION
     Dosage: 200 MILLIGRAM, ONCE A DAY
     Route: 065
     Dates: start: 20190716, end: 20190722
  14. TOBRAMYCIN. [Concomitant]
     Active Substance: TOBRAMYCIN
     Dosage: 2 DOSAGE FORM, ONCE A DAY (1 AMPOULE, BID)
     Route: 065
     Dates: start: 20190716
  15. CEFTOLOZANE SULFATE;TAZOBACTAM SODIUM [Suspect]
     Active Substance: CEFTOLOZANE SULFATE\TAZOBACTAM SODIUM
     Indication: PNEUMONIA
     Dosage: 6 GRAM, ONCE A DAY (2 GRAM, TID)
     Route: 042
     Dates: start: 20190719, end: 20190729
  16. BACTRIM [Suspect]
     Active Substance: SULFAMETHOXAZOLE\TRIMETHOPRIM
     Indication: PROPHYLAXIS
     Dosage: 3 DOSAGE FORM, EVERY WEEK (1 TABLET, THREE TIMES A WEEK (TIW))
     Route: 048
     Dates: start: 20190725
  17. TOBRAMYCIN. [Suspect]
     Active Substance: TOBRAMYCIN
     Indication: PNEUMONIA
     Dosage: 200 MILLIGRAM, ONCE A DAY
     Route: 065
     Dates: start: 20190716, end: 20190722

REACTIONS (3)
  - Off label use [Unknown]
  - Renal impairment [Recovering/Resolving]
  - Overdose [Unknown]

NARRATIVE: CASE EVENT DATE: 20190719
